FAERS Safety Report 5967941-5 (Version None)
Quarter: 2008Q4

REPORT INFORMATION
  Report Type: 
  Country: None (occurrence: None)
  Receive Date: 20081126
  Receipt Date: 20081120
  Transmission Date: 20090506
  Serious: Yes (Hospitalization)
  Sender: FDA-Public Use
  Company Number: CA-ASTRAZENECA-2008UW20482

PATIENT
  Age: 9663 Day
  Sex: Male
  Weight: 136 kg

DRUGS (13)
  1. SEROQUEL XR [Suspect]
     Indication: SCHIZOPHRENIA
     Route: 048
     Dates: start: 20080707
  2. SEROQUEL XR [Suspect]
     Route: 048
     Dates: start: 20080708
  3. SEROQUEL XR [Suspect]
     Route: 048
     Dates: start: 20080808, end: 20080918
  4. WELLBUTRIN [Concomitant]
     Indication: DEPRESSION
     Route: 048
     Dates: start: 20080601
  5. CLONAZEPAM [Concomitant]
     Indication: ANXIETY
     Route: 048
     Dates: start: 20080601
  6. TEMAZEPAM [Concomitant]
     Indication: INSOMNIA
     Route: 048
     Dates: start: 20080601
  7. ZYPREXA ZYDIS [Concomitant]
     Indication: SCHIZOPHRENIA
     Route: 048
     Dates: start: 20080513, end: 20080706
  8. ZYPREXA ZYDIS [Concomitant]
     Route: 048
     Dates: start: 20080707, end: 20080707
  9. ZYPREXA ZYDIS [Concomitant]
     Route: 048
     Dates: start: 20080708, end: 20080710
  10. ZYPREXA ZYDIS [Concomitant]
     Route: 048
     Dates: start: 20080711, end: 20080712
  11. ZYPREXA [Concomitant]
  12. RISPERDAL [Concomitant]
  13. SEROQUEL [Concomitant]

REACTIONS (3)
  - DELUSION [None]
  - HALLUCINATION [None]
  - INSOMNIA [None]
